FAERS Safety Report 23298992 (Version 2)
Quarter: 2024Q1

REPORT INFORMATION
  Report Type: Report from Study
  Country: US (occurrence: US)
  Receive Date: 20231215
  Receipt Date: 20240201
  Transmission Date: 20240410
  Serious: Yes (Hospitalization)
  Sender: FDA-Public Use
  Company Number: US-JAZZ PHARMACEUTICALS-2023-US-023604

PATIENT
  Age: 14 Year
  Sex: Male

DRUGS (5)
  1. EPIDIOLEX [Suspect]
     Active Substance: CANNABIDIOL
     Indication: Lennox-Gastaut syndrome
     Dosage: 3 MILLILITER, BID
     Route: 048
     Dates: start: 202310
  2. EPIDIOLEX [Suspect]
     Active Substance: CANNABIDIOL
     Dosage: 300 MILLIGRAM BID
     Route: 048
     Dates: start: 20231005
  3. EPIDIOLEX [Suspect]
     Active Substance: CANNABIDIOL
     Dosage: 5 MILLILITER, BID
     Route: 048
  4. EPIDIOLEX [Suspect]
     Active Substance: CANNABIDIOL
     Dosage: 5.5 MILLILITER, BID
     Route: 048
     Dates: start: 202310
  5. VERSED [Suspect]
     Active Substance: MIDAZOLAM HYDROCHLORIDE
     Indication: Product used for unknown indication
     Dosage: UNK

REACTIONS (4)
  - Hospitalisation [Unknown]
  - Seizure [Not Recovered/Not Resolved]
  - Seizure [Unknown]
  - Drug hypersensitivity [Unknown]

NARRATIVE: CASE EVENT DATE: 20231127
